FAERS Safety Report 11083359 (Version 1)
Quarter: 2015Q2

REPORT INFORMATION
  Report Type: Report from Study
  Country: US (occurrence: US)
  Receive Date: 20150501
  Receipt Date: 20150501
  Transmission Date: 20150821
  Serious: No
  Sender: FDA-Public Use
  Company Number: US-ABBVIE-14P-163-1277066-00

PATIENT
  Age: 41 Year
  Sex: Male
  Weight: 104.42 kg

DRUGS (6)
  1. ANDROGEL [Suspect]
     Active Substance: TESTOSTERONE
     Indication: BLOOD TESTOSTERONE DECREASED
     Dates: start: 201312
  2. OMEPRAZOLE. [Concomitant]
     Active Substance: OMEPRAZOLE
     Indication: GASTROOESOPHAGEAL REFLUX DISEASE
  3. CELEXA [Concomitant]
     Active Substance: CITALOPRAM HYDROBROMIDE
     Indication: IRRITABLE BOWEL SYNDROME
  4. ANDROGEL [Suspect]
     Active Substance: TESTOSTERONE
     Dates: start: 201403
  5. VITAMIN B [Concomitant]
     Active Substance: VITAMIN B
     Indication: VITAMIN SUPPLEMENTATION
  6. VITAMIN D [Concomitant]
     Active Substance: CHOLECALCIFEROL
     Indication: VITAMIN SUPPLEMENTATION

REACTIONS (2)
  - Herpes simplex [Recovered/Resolved]
  - Herpes simplex [Not Recovered/Not Resolved]

NARRATIVE: CASE EVENT DATE: 201403
